FAERS Safety Report 5915211-3 (Version None)
Quarter: 2008Q4

REPORT INFORMATION
  Report Type: 
  Country: None (occurrence: None)
  Receive Date: 20081010
  Receipt Date: 20080923
  Transmission Date: 20090506
  Serious: Yes (Hospitalization, Disabling)
  Sender: FDA-Public Use
  Company Number: FR-MERCK-0809FRA00093

PATIENT
  Age: 42 Year
  Sex: Female

DRUGS (13)
  1. ISENTRESS [Suspect]
     Indication: HIV INFECTION
     Route: 048
     Dates: start: 20080822, end: 20080917
  2. MARAVIROC [Suspect]
     Indication: HIV INFECTION
     Route: 048
     Dates: start: 20080822, end: 20080917
  3. DARUNAVIR [Suspect]
     Indication: HIV INFECTION
     Route: 048
     Dates: start: 20080822, end: 20080917
  4. RITONAVIR [Suspect]
     Indication: HIV INFECTION
     Route: 048
     Dates: start: 20080822, end: 20080917
  5. LAMIVUDINE [Suspect]
     Indication: HIV INFECTION
     Route: 048
     Dates: start: 20080822, end: 20080917
  6. VALPROATE SODIUM [Concomitant]
     Route: 048
  7. OLANZAPINE [Concomitant]
     Route: 048
  8. CLONAZEPAM [Concomitant]
     Route: 048
  9. ATOVAQUONE [Concomitant]
     Route: 048
     Dates: start: 20080716, end: 20080919
  10. TRIMEPRAZINE TARTRATE [Concomitant]
     Route: 048
     Dates: start: 20080723, end: 20080919
  11. CYAMEMAZINE [Concomitant]
     Route: 048
     Dates: start: 20080812, end: 20080919
  12. GLICLAZIDE [Concomitant]
     Route: 048
     Dates: start: 20071126, end: 20080919
  13. PIOGLITAZONE HYDROCHLORIDE [Concomitant]
     Route: 048
     Dates: start: 20071126, end: 20080919

REACTIONS (2)
  - ERYSIPELAS [None]
  - NEUTROPENIA [None]
